FAERS Safety Report 7141781-6 (Version None)
Quarter: 2010Q4

REPORT INFORMATION
  Report Type: 
  Country: None (occurrence: None)
  Receive Date: 20101202
  Receipt Date: 20101202
  Transmission Date: 20110411
  Serious: No
  Sender: FDA-Public Use
  Company Number: None

PATIENT
  Sex: Female
  Weight: 101.6057 kg

DRUGS (1)
  1. BENTYL [Suspect]
     Indication: PANCREATITIS
     Dosage: 20MG/2ML Q 8?  GIVEN I.V.
     Route: 042
     Dates: start: 20100928, end: 20101001

REACTIONS (2)
  - INCORRECT ROUTE OF DRUG ADMINISTRATION [None]
  - PHLEBITIS [None]
